FAERS Safety Report 8513601-6 (Version None)
Quarter: 2012Q3

REPORT INFORMATION
  Report Type: 
  Country: None (occurrence: None)
  Receive Date: 20120717
  Receipt Date: 20120712
  Transmission Date: 20120928
  Serious: No
  Sender: FDA-Public Use
  Company Number: US-PFIZER INC-2012168488

PATIENT
  Sex: Female

DRUGS (2)
  1. CELEBREX [Suspect]
     Dosage: UNK
  2. ASPIRIN [Suspect]
     Dosage: UNK

REACTIONS (3)
  - BLISTER [None]
  - RASH [None]
  - SKIN WARM [None]
